FAERS Safety Report 5350787-9 (Version None)
Quarter: 2007Q2

REPORT INFORMATION
  Report Type: 
  Country: None (occurrence: None)
  Receive Date: 20070608
  Receipt Date: 20070530
  Transmission Date: 20071010
  Serious: Yes (Other)
  Sender: FDA-Public Use
  Company Number: JP-ROCHE-493214

PATIENT
  Age: 66 Year
  Sex: Female
  Weight: 42 kg

DRUGS (13)
  1. TAMIFLU [Suspect]
     Route: 048
     Dates: start: 20070313, end: 20070313
  2. TAMIFLU [Suspect]
     Route: 048
     Dates: start: 20070314, end: 20070314
  3. ACETAMINOPHEN [Concomitant]
     Route: 048
     Dates: start: 20070313, end: 20070314
  4. CLARITHROMYCIN [Concomitant]
     Dosage: IN THE MORNING AND IN THE EVENING
     Route: 048
     Dates: start: 20060612
  5. MEDICON [Concomitant]
     Dosage: AFTER EVERY MEAL
     Route: 048
     Dates: start: 20061225
  6. DASEN [Concomitant]
     Dosage: AFTER EVERY MEAL
     Route: 048
     Dates: start: 20060612
  7. MUCOSOLVAN [Concomitant]
     Dosage: AFTER EVERY MEAL
     Route: 048
     Dates: start: 20060424
  8. MUCODYNE [Concomitant]
     Dosage: AFTER EVERY MEAL.
     Route: 048
     Dates: start: 20060424
  9. MYSLEE [Concomitant]
     Indication: INSOMNIA
     Dosage: TAKEN AS NEEDED
     Route: 048
     Dates: start: 20070226, end: 20070411
  10. MEPTIN [Concomitant]
     Dosage: TAKEN AS NEEDED. DOSE FORM:INHALANT.
     Route: 055
     Dates: start: 20060424
  11. OXITROPIUM [Concomitant]
     Dosage: DOSE FORM:INHALANT. DRUG NAME REPORTED AS TERSIGAN.
     Route: 055
     Dates: start: 20061225
  12. THEOLONG [Concomitant]
     Route: 048
     Dates: start: 20060424
  13. HOKUNALIN [Concomitant]
     Dosage: DOSE FORM:TAPE
     Route: 061
     Dates: start: 20060424

REACTIONS (1)
  - DEPRESSION [None]
